FAERS Safety Report 7469433-3 (Version None)
Quarter: 2011Q2

REPORT INFORMATION
  Report Type: 
  Country: None (occurrence: None)
  Receive Date: 20110510
  Receipt Date: 20110329
  Transmission Date: 20111010
  Serious: Yes (Hospitalization, Other)
  Sender: FDA-Public Use
  Company Number: US-BAYER-201023418NA

PATIENT
  Age: 34 Year
  Sex: Female
  Weight: 87 kg

DRUGS (9)
  1. ANTITHROMBOTIC AGENTS [Concomitant]
     Indication: PULMONARY EMBOLISM
  2. PROVIGIL [Concomitant]
     Indication: SLEEP DISORDER
     Dosage: 200 MG, UNK
     Dates: start: 20070801, end: 20080101
  3. PROVIGIL [Concomitant]
     Dosage: UNK
     Dates: start: 20080401, end: 20100101
  4. ANTITHROMBOTIC AGENTS [Concomitant]
     Indication: DEEP VEIN THROMBOSIS
     Dosage: UNK
     Dates: start: 20080809, end: 20090312
  5. YASMIN [Suspect]
     Indication: CONTRACEPTION
     Dosage: UNK
     Route: 048
     Dates: start: 20030701, end: 20061101
  6. COMBIVIR [Concomitant]
     Indication: HIV INFECTION
     Dosage: 1 DF, BID
     Route: 048
     Dates: start: 20000101
  7. YAZ [Suspect]
     Indication: PRODUCT USED FOR UNKNOWN INDICATION
     Dosage: UNK
     Route: 048
     Dates: start: 20061201, end: 20080801
  8. ZOLPIDEM [Concomitant]
     Dosage: 5 MG, UNK
     Route: 048
  9. VIRACEPT [Concomitant]
     Indication: HIV INFECTION
     Dosage: 1250 MG, BID
     Route: 048
     Dates: start: 20000101

REACTIONS (6)
  - DEEP VEIN THROMBOSIS [None]
  - EMOTIONAL DISTRESS [None]
  - PAIN [None]
  - PAIN IN EXTREMITY [None]
  - PULMONARY EMBOLISM [None]
  - NERVE INJURY [None]
